FAERS Safety Report 5614708-3 (Version None)
Quarter: 2008Q1

REPORT INFORMATION
  Report Type: 
  Country: None (occurrence: None)
  Receive Date: 20080131
  Receipt Date: 20080116
  Transmission Date: 20080703
  Serious: Yes (Hospitalization)
  Sender: FDA-Public Use
  Company Number: 2008BM000011

PATIENT
  Age: 11 Year
  Sex: Male
  Weight: 18 kg

DRUGS (1)
  1. NAGLAZYME [Suspect]
     Indication: MUCOPOLYSACCHARIDOSIS VI
     Dates: start: 20071201

REACTIONS (2)
  - PULMONARY HYPERTENSION [None]
  - TONSILLITIS [None]
